FAERS Safety Report 19265596 (Version 7)
Quarter: 2023Q4

REPORT INFORMATION
  Report Type: Spontaneous
  Country: US (occurrence: US)
  Receive Date: 20210517
  Receipt Date: 20231211
  Transmission Date: 20240109
  Serious: Yes (Disabling, Other)
  Sender: FDA-Public Use
  Company Number: US-ORGANON-O2105USA000852

PATIENT
  Sex: Female

DRUGS (11)
  1. SINGULAIR [Suspect]
     Active Substance: MONTELUKAST SODIUM
     Indication: Asthma
     Dosage: UNK
     Route: 048
     Dates: start: 200604
  2. SINGULAIR [Suspect]
     Active Substance: MONTELUKAST SODIUM
     Indication: Asthma
     Dosage: UNK
     Route: 048
     Dates: end: 201904
  3. SINGULAIR [Suspect]
     Active Substance: MONTELUKAST SODIUM
     Dosage: UNK, IN THE EVENING
     Route: 048
     Dates: start: 20080812
  4. SINGULAIR [Suspect]
     Active Substance: MONTELUKAST SODIUM
     Dosage: UNK, IN THE EVENING
     Route: 048
     Dates: start: 20080915
  5. SINGULAIR [Suspect]
     Active Substance: MONTELUKAST SODIUM
     Dosage: UNK, IN THE EVENING
     Route: 048
     Dates: start: 20081028
  6. SINGULAIR [Suspect]
     Active Substance: MONTELUKAST SODIUM
     Dosage: UNK, IN THE EVENING
     Route: 048
     Dates: start: 20081208
  7. SINGULAIR [Suspect]
     Active Substance: MONTELUKAST SODIUM
     Dosage: UNK, IN THE EVENING
     Route: 048
     Dates: start: 20090117
  8. SINGULAIR [Suspect]
     Active Substance: MONTELUKAST SODIUM
     Dosage: UNK, IN THE EVENING
     Route: 048
     Dates: start: 20090217
  9. SINGULAIR [Suspect]
     Active Substance: MONTELUKAST SODIUM
     Dosage: UNK, IN THE EVENING
     Route: 048
     Dates: start: 20090331
  10. EFFEXOR [Suspect]
     Active Substance: VENLAFAXINE HYDROCHLORIDE
     Dosage: 4 DOSES
  11. EFFEXOR [Suspect]
     Active Substance: VENLAFAXINE HYDROCHLORIDE
     Dosage: 4 DOSES

REACTIONS (26)
  - Neuropsychological symptoms [Not Recovered/Not Resolved]
  - Sleep terror [Not Recovered/Not Resolved]
  - Tonsillectomy [Unknown]
  - Amnesia [Not Recovered/Not Resolved]
  - Generalised anxiety disorder [Not Recovered/Not Resolved]
  - Headache [Not Recovered/Not Resolved]
  - Suicidal ideation [Not Recovered/Not Resolved]
  - Tremor [Recovering/Resolving]
  - Hallucination [Unknown]
  - Tunnel vision [Unknown]
  - Migraine [Not Recovered/Not Resolved]
  - Infection [Unknown]
  - Panic disorder [Unknown]
  - Agoraphobia [Not Recovered/Not Resolved]
  - Sleep disorder [Not Recovered/Not Resolved]
  - Anxiety [Not Recovered/Not Resolved]
  - Insomnia [Unknown]
  - Depression [Unknown]
  - Nightmare [Unknown]
  - Peripheral coldness [Unknown]
  - Temperature intolerance [Not Recovered/Not Resolved]
  - Memory impairment [Unknown]
  - Dizziness [Unknown]
  - Vertigo [Unknown]
  - Phonophobia [Unknown]
  - Tinnitus [Unknown]

NARRATIVE: CASE EVENT DATE: 20050101
